FAERS Safety Report 6950157-3 (Version None)
Quarter: 2010Q3

REPORT INFORMATION
  Report Type: 
  Country: None (occurrence: None)
  Receive Date: 20100828
  Receipt Date: 20100226
  Transmission Date: 20110219
  Serious: No
  Sender: FDA-Public Use
  Company Number: US-ABBOTT-10P-163-0620089-00

PATIENT
  Sex: Male
  Weight: 63.56 kg

DRUGS (5)
  1. NIASPAN [Suspect]
     Indication: BLOOD CHOLESTEROL INCREASED
     Dosage: EVERY NIGHT
     Dates: start: 20090101
  2. NIASPAN [Suspect]
     Dosage: EVERY NIGHT
     Dates: end: 20090401
  3. METFORMIN HCL [Suspect]
     Indication: DIABETES MELLITUS
     Dates: start: 20090401
  4. METFORMIN HCL [Suspect]
  5. SINGULAIR [Concomitant]
     Indication: ASTHMA

REACTIONS (4)
  - EYE SWELLING [None]
  - FLUSHING [None]
  - LIP SWELLING [None]
  - URTICARIA [None]
